FAERS Safety Report 4449126-7 (Version None)
Quarter: 2004Q3

REPORT INFORMATION
  Report Type: 
  Country: None (occurrence: None)
  Receive Date: 20040909
  Receipt Date: 20040708
  Transmission Date: 20050211
  Serious: Yes (Death, Hospitalization)
  Sender: FDA-Public Use
  Company Number: F01200401878

PATIENT
  Age: 66 Year
  Sex: Male
  Weight: 77 kg

DRUGS (9)
  1. OXALIPLATIN - SOLUTION - 85 MG/M2 [Suspect]
     Indication: HEPATIC NEOPLASM MALIGNANT
     Dosage: 85 MG/M2 ON DAYS 2 AND 16 Q4W - INTRAVENOUS NOS
     Route: 042
     Dates: start: 20040609, end: 20040609
  2. GEMCITABINE -SOLUTION - 1000 MG/M2 [Suspect]
     Dosage: 1000 MG/2 DAYS 2 AND 16 Q4W - INTRAVENOUS NOS
     Route: 042
     Dates: start: 20040609, end: 20040609
  3. AVASTATIN -SOLUTION - UNIT DOSE : UNKNOWN [Suspect]
     Dosage: 10 MG/KG DAYS 1 AND 15 Q2W - INTRAVENOUS NOS
     Route: 042
     Dates: start: 20040608, end: 20040608
  4. PANTOPRAZOLE SODIUM [Concomitant]
  5. PROCHLORPERAZINE EDISYLATE [Concomitant]
  6. LORAZEPAM [Concomitant]
  7. DILTIAZEM [Concomitant]
  8. HYDROCHLOROTHIAZIDE [Concomitant]
  9. ONDANSETRON HCL [Concomitant]

REACTIONS (17)
  - ANOREXIA [None]
  - CONDITION AGGRAVATED [None]
  - CONSTIPATION [None]
  - DEHYDRATION [None]
  - DIARRHOEA [None]
  - DRUG TOXICITY [None]
  - FATIGUE [None]
  - HAEMATOCHEZIA [None]
  - HEPATIC CIRRHOSIS [None]
  - HEPATIC FAILURE [None]
  - HEPATIC NEOPLASM MALIGNANT [None]
  - ILEUS [None]
  - MALIGNANT NEOPLASM PROGRESSION [None]
  - PYREXIA [None]
  - RENAL FAILURE [None]
  - SMALL INTESTINAL OBSTRUCTION [None]
  - WEIGHT DECREASED [None]
